FAERS Safety Report 4725036-2 (Version None)
Quarter: 2005Q3

REPORT INFORMATION
  Report Type: 
  Country: None (occurrence: None)
  Receive Date: 20050722
  Receipt Date: 20050712
  Transmission Date: 20060218
  Serious: Yes (Other)
  Sender: FDA-Public Use
  Company Number: 2005099561

PATIENT
  Sex: Male

DRUGS (1)
  1. RELPAX [Suspect]
     Indication: MIGRAINE
     Dosage: (AS NEEDED), ORAL
     Route: 048

REACTIONS (2)
  - MUSCLE RUPTURE [None]
  - PAIN IN EXTREMITY [None]
